FAERS Safety Report 7465897-X (Version None)
Quarter: 2011Q2

REPORT INFORMATION
  Report Type: 
  Country: None (occurrence: None)
  Receive Date: 20110509
  Receipt Date: 20100413
  Transmission Date: 20111010
  Serious: No
  Sender: FDA-Public Use
  Company Number: US-ALEXION-A201000325

PATIENT
  Sex: Male

DRUGS (7)
  1. FOLATE [Concomitant]
     Indication: PAROXYSMAL NOCTURNAL HAEMOGLOBINURIA
     Dosage: 1 MG, QD
     Route: 048
  2. SOLIRIS [Suspect]
     Dosage: 1200 MG, Q14DAYS
     Route: 042
     Dates: start: 20100304
  3. SOLIRIS [Suspect]
     Indication: PAROXYSMAL NOCTURNAL HAEMOGLOBINURIA
     Dosage: 600 MG, QW X 4 WEEKS
     Route: 042
     Dates: start: 20080806, end: 20080101
  4. EXJADE [Concomitant]
     Indication: IRON OVERLOAD
     Dosage: 1 G, BID
     Dates: end: 20100317
  5. DANAZOL [Concomitant]
     Indication: PAROXYSMAL NOCTURNAL HAEMOGLOBINURIA
     Dosage: 200 MG, TID
     Route: 048
     Dates: start: 20091001, end: 20100301
  6. SOLIRIS [Suspect]
     Dosage: 900 MG, Q14 DAYS
     Route: 042
     Dates: start: 20080903, end: 20100101
  7. LISINOPRIL [Concomitant]
     Indication: HYPERTENSION
     Dosage: 10 MG, BID
     Route: 048

REACTIONS (6)
  - HAEMOLYSIS [None]
  - HAEMOGLOBIN DECREASED [None]
  - PLATELET COUNT DECREASED [None]
  - BLOOD CREATININE INCREASED [None]
  - SERUM FERRITIN INCREASED [None]
  - WHITE BLOOD CELL COUNT DECREASED [None]
